FAERS Safety Report 23104979 (Version 1)
Quarter: 2023Q4

REPORT INFORMATION
  Report Type: Spontaneous
  Country: BG (occurrence: BG)
  Receive Date: 20231025
  Receipt Date: 20231025
  Transmission Date: 20240109
  Serious: Yes (Hospitalization, Other)
  Sender: FDA-Public Use
  Company Number: BG-AMGEN-BGRSP2023187278

PATIENT
  Age: 45 Year
  Sex: Male

DRUGS (16)
  1. ADALIMUMAB [Suspect]
     Active Substance: ADALIMUMAB\ISOPROPYL ALCOHOL
     Indication: Hidradenitis
     Dosage: 40 MILLIGRAM, QWK (9 MONTHS)
     Route: 058
     Dates: start: 2023
  2. METRONIDAZOLE [Concomitant]
     Active Substance: METRONIDAZOLE
     Indication: Hidradenitis
     Dosage: 500 MILLIGRAM, BID
     Route: 042
  3. METRONIDAZOLE [Concomitant]
     Active Substance: METRONIDAZOLE
     Dosage: 250 MILLIGRAM
  4. COLCHICINE [Concomitant]
     Active Substance: COLCHICINE
     Indication: Hidradenitis
     Dosage: 0.5 MILLIGRAM, BID (FOR 1 MONTH)
  5. KETOTIFEN [Concomitant]
     Active Substance: KETOTIFEN
     Indication: Hidradenitis
     Dosage: 1 MILLIGRAM, BID
  6. DIETARY SUPPLEMENT\HERBALS\MILK THISTLE [Concomitant]
     Active Substance: MILK THISTLE
     Indication: Hidradenitis
     Dosage: 90 MILLIGRAM, BID (TWO TIMES ONE PER DAY)
  7. DIETARY SUPPLEMENT\HERBALS\MILK THISTLE [Concomitant]
     Active Substance: MILK THISTLE
     Dosage: 90 MILLIGRAM, BID (FOR A MONTH)
  8. FLUCONAZOLE [Concomitant]
     Active Substance: FLUCONAZOLE
     Indication: Hidradenitis
     Dosage: 50 MILLIGRAM, QD (FOR ONE-TWO MONTHS)
  9. ZINC GLUCONATE [Concomitant]
     Active Substance: ZINC GLUCONATE
     Indication: Hidradenitis
     Dosage: 30 MILLIGRAM, QD (TWO TABLETS THREE TIMES A DAY FOR 10 DAYS)
  10. ZINC GLUCONATE [Concomitant]
     Active Substance: ZINC GLUCONATE
     Dosage: 15 MILLIGRAM, TID (15 MG 3 TIMES DAILY PER OS)
     Route: 048
  11. ZINC GLUCONATE [Concomitant]
     Active Substance: ZINC GLUCONATE
     Dosage: 15 MILLIGRAM (3 TIMES TWO TABLETS FOR A MONTH)
  12. CEFTRIAXONE [Concomitant]
     Active Substance: CEFTRIAXONE\CEFTRIAXONE SODIUM
     Indication: Hidradenitis
     Dosage: 2 GRAM, QD
     Route: 042
  13. DOXYCYCLINE [Concomitant]
     Active Substance: DOXYCYCLINE
     Indication: Hidradenitis
     Dosage: 100 MILLIGRAM, QD (FOR A MONTH )
  14. ERTAPENEM [Concomitant]
     Active Substance: ERTAPENEM
     Indication: Hidradenitis
     Dosage: 1 GRAM, QD
     Route: 042
  15. CANDESARTAN CILEXETIL [Concomitant]
     Active Substance: CANDESARTAN CILEXETIL
     Indication: Hypertension
     Dosage: 16 MILLIGRAM, QD (ONCE IN THE MORNING)
  16. AMLODIPINE [Concomitant]
     Active Substance: AMLODIPINE BESYLATE
     Indication: Hypertension
     Dosage: 5 MILLIGRAM, QD (ONCE IN THE MORNING)

REACTIONS (2)
  - Hidradenitis [Recovering/Resolving]
  - Drug ineffective [Unknown]
